FAERS Safety Report 20155427 (Version 1)
Quarter: 2021Q4

REPORT INFORMATION
  Report Type: Spontaneous
  Country: NL (occurrence: NL)
  Receive Date: 20211207
  Receipt Date: 20211207
  Transmission Date: 20220303
  Serious: Yes (Other)
  Sender: FDA-Public Use
  Company Number: None

PATIENT
  Age: 70 Year
  Sex: Female
  Weight: 82 kg

DRUGS (1)
  1. TAMSULOSIN HYDROCHLORIDE [Suspect]
     Active Substance: TAMSULOSIN HYDROCHLORIDE
     Indication: Nephrolithiasis
     Dosage: .4 MILLIGRAM DAILY; 1 X PER DAY 1 PIECE,MGA  / BRAND NAME NOT SPECIFIED,THERAPY END DATE:ASKU
     Dates: start: 20211025

REACTIONS (2)
  - Hypoglycaemia [Not Recovered/Not Resolved]
  - Blood glucose decreased [Not Recovered/Not Resolved]

NARRATIVE: CASE EVENT DATE: 20211025
